FAERS Safety Report 18655625 (Version 1)
Quarter: 2020Q4

REPORT INFORMATION
  Report Type: Spontaneous
  Country: US (occurrence: US)
  Receive Date: 20201223
  Receipt Date: 20201223
  Transmission Date: 20210114
  Serious: No
  Sender: FDA-Public Use
  Company Number: US-PFIZER INC-2020506197

PATIENT
  Sex: Female

DRUGS (13)
  1. OMEPRAZOLE. [Concomitant]
     Active Substance: OMEPRAZOLE
     Dosage: UNK
  2. LORAZEPAM. [Concomitant]
     Active Substance: LORAZEPAM
     Dosage: UNK
  3. TRAMADOL. [Concomitant]
     Active Substance: TRAMADOL
     Dosage: UNK
  4. SPIRONOLACTONE. [Concomitant]
     Active Substance: SPIRONOLACTONE
     Dosage: UNK
  5. FLUCELVAX QUADRIVALENT [Concomitant]
     Dosage: UNK
  6. IBRANCE [Suspect]
     Active Substance: PALBOCICLIB
     Indication: BREAST CANCER METASTATIC
     Dosage: 125 MG, CYCLIC [DAILY FOR 21 DAYS, THEN 7 DAYS OFF (125 MG)]
     Route: 048
     Dates: start: 20200701
  7. LEVOTHYROXINE. [Concomitant]
     Active Substance: LEVOTHYROXINE
     Dosage: UNK
  8. VICODIN [Suspect]
     Active Substance: ACETAMINOPHEN\HYDROCODONE BITARTRATE
     Dosage: UNK
     Route: 048
  9. LETROZOLE. [Concomitant]
     Active Substance: LETROZOLE
     Dosage: UNK
  10. MELOXICAM. [Concomitant]
     Active Substance: MELOXICAM
     Dosage: UNK
  11. VITAMIN D3 [Concomitant]
     Active Substance: CHOLECALCIFEROL
     Dosage: UNK
  12. XGEVA [Concomitant]
     Active Substance: DENOSUMAB
     Dosage: UNK
  13. CALCIUM CARBONATE. [Concomitant]
     Active Substance: CALCIUM CARBONATE
     Dosage: UNK

REACTIONS (3)
  - Hot flush [Not Recovered/Not Resolved]
  - Night sweats [Not Recovered/Not Resolved]
  - Drug hypersensitivity [Unknown]

NARRATIVE: CASE EVENT DATE: 2020
